FAERS Safety Report 10172889 (Version 1)
Quarter: 2014Q2

REPORT INFORMATION
  Report Type: Report from Study
  Country: US (occurrence: US)
  Receive Date: 20140515
  Receipt Date: 20140515
  Transmission Date: 20141212
  Serious: Yes (Hospitalization)
  Sender: FDA-Public Use
  Company Number: US-JNJFOC-20140501372

PATIENT
  Age: 48 Year
  Sex: Female
  Weight: 84.6 kg

DRUGS (8)
  1. DIPHENHYDRAMINE HYDROCHLORIDE [Suspect]
     Indication: SUICIDE ATTEMPT
     Route: 048
  2. LAMOTRIGINE [Suspect]
     Indication: SUICIDE ATTEMPT
     Route: 048
  3. MIRTAZAPINE [Suspect]
     Indication: SUICIDE ATTEMPT
     Route: 048
  4. PROMETHAZINE [Suspect]
     Indication: SUICIDE ATTEMPT
     Route: 048
  5. DIAZEPAM [Suspect]
     Indication: SUICIDE ATTEMPT
     Route: 048
  6. NAPROXEN [Suspect]
     Indication: SUICIDE ATTEMPT
     Route: 048
  7. CITALOPRAM [Suspect]
     Indication: SUICIDE ATTEMPT
     Route: 048
  8. ACETAMINOPHEN / HYDROCODONE [Suspect]
     Indication: SUICIDE ATTEMPT
     Route: 048

REACTIONS (2)
  - Coma [Unknown]
  - Liver function test abnormal [Unknown]
